FAERS Safety Report 20795435 (Version 1)
Quarter: 2022Q2

REPORT INFORMATION
  Report Type: Report from Study
  Country: AR (occurrence: AR)
  Receive Date: 20220506
  Receipt Date: 20220506
  Transmission Date: 20220721
  Serious: Yes (Other)
  Sender: FDA-Public Use
  Company Number: AR-JNJFOC-20220504004

PATIENT
  Age: 77 Year
  Sex: Female
  Weight: 100 kg

DRUGS (1)
  1. DARZALEX [Suspect]
     Active Substance: DARATUMUMAB
     Indication: Plasma cell myeloma
     Route: 042
     Dates: start: 20220421

REACTIONS (1)
  - Vein rupture [Not Recovered/Not Resolved]

NARRATIVE: CASE EVENT DATE: 20220421
